FAERS Safety Report 9274667 (Version 2)
Quarter: 2013Q2

REPORT INFORMATION
  Report Type: Report from Study
  Country: FR (occurrence: FR)
  Receive Date: 20130507
  Receipt Date: 20130510
  Transmission Date: 20140414
  Serious: No
  Sender: FDA-Public Use
  Company Number: FR-ROCHE-1221502

PATIENT
  Age: 56 Year
  Sex: Female

DRUGS (1)
  1. TOCILIZUMAB [Suspect]
     Indication: RHEUMATOID ARTHRITIS
     Route: 065
     Dates: start: 20120614

REACTIONS (1)
  - Oropharyngeal pain [Recovered/Resolved]
